FAERS Safety Report 4693904-6 (Version None)
Quarter: 2005Q2

REPORT INFORMATION
  Report Type: 
  Country: None (occurrence: None)
  Receive Date: 20050617
  Receipt Date: 20050419
  Transmission Date: 20051028
  Serious: Yes (Hospitalization)
  Sender: FDA-Public Use
  Company Number: JP-MERCK-0505USA03369

PATIENT
  Age: 81 Year
  Sex: Male

DRUGS (4)
  1. PEPCID [Suspect]
     Indication: GASTRITIS
     Route: 041
     Dates: start: 20050218, end: 20050220
  2. SOSEGON [Concomitant]
     Indication: ABDOMINAL PAIN
     Route: 042
     Dates: start: 20050221, end: 20050221
  3. FUTHAN [Concomitant]
     Indication: PANCREATITIS
     Route: 042
     Dates: start: 20050222, end: 20050222
  4. SULPERAZON [Suspect]
     Indication: CHOLANGITIS ACUTE
     Route: 042
     Dates: start: 20050218, end: 20050224

REACTIONS (1)
  - JAUNDICE [None]
